FAERS Safety Report 14573132 (Version 1)
Quarter: 2018Q1

REPORT INFORMATION
  Report Type: Spontaneous
  Country: JP (occurrence: JP)
  Receive Date: 20180226
  Receipt Date: 20180226
  Transmission Date: 20180509
  Serious: Yes (Other)
  Sender: FDA-Public Use
  Company Number: JP-SA-2018SA050075

PATIENT
  Age: 72 Year
  Sex: Female

DRUGS (4)
  1. TEGAFUR [Suspect]
     Active Substance: TEGAFUR
     Indication: GASTRIC CANCER
     Dosage: 80 MG/M2
     Route: 065
  2. OTERACIL [Suspect]
     Active Substance: OTERACIL
     Indication: GASTRIC CANCER
     Dosage: 80 MG/M2
     Route: 065
  3. OXALIPLATIN. [Suspect]
     Active Substance: OXALIPLATIN
     Indication: GASTRIC CANCER
     Dosage: 80 MG/M2
     Route: 065
  4. GIMERACIL [Suspect]
     Active Substance: GIMERACIL
     Indication: GASTRIC CANCER
     Dosage: 80 MG/M2
     Route: 065

REACTIONS (2)
  - Disturbance in attention [Unknown]
  - Nausea [Unknown]
